FAERS Safety Report 23155000 (Version 1)
Quarter: 2023Q4

REPORT INFORMATION
  Report Type: Spontaneous
  Country: US (occurrence: US)
  Receive Date: 20231107
  Receipt Date: 20231107
  Transmission Date: 20240110
  Serious: Yes (Other)
  Sender: FDA-Public Use
  Company Number: US-TEVA-2023-US-2942171

PATIENT
  Age: 66 Year
  Sex: Female

DRUGS (4)
  1. AMANTADINE [Suspect]
     Active Substance: AMANTADINE
     Indication: Parkinson^s disease
     Dosage: 300 MILLIGRAM DAILY;
     Route: 065
  2. LEVODOPA [Concomitant]
     Active Substance: LEVODOPA
     Indication: Parkinson^s disease
     Dosage: 1000 MILLIGRAM DAILY;
     Route: 065
  3. DIPHENHYDRAMINE [Concomitant]
     Active Substance: DIPHENHYDRAMINE
     Indication: Parkinson^s disease
     Dosage: 25 MILLIGRAM DAILY;
     Route: 065
  4. NORFLOXACIN [Concomitant]
     Active Substance: NORFLOXACIN
     Indication: Urinary tract infection
     Route: 065

REACTIONS (2)
  - Myoclonus [Recovered/Resolved]
  - Generalised tonic-clonic seizure [Unknown]
